FAERS Safety Report 8606511-7 (Version None)
Quarter: 2012Q3

REPORT INFORMATION
  Report Type: 
  Country: None (occurrence: None)
  Receive Date: 20120820
  Receipt Date: 20120813
  Transmission Date: 20120928
  Serious: No
  Sender: FDA-Public Use
  Company Number: US-PFIZER INC-2012198630

PATIENT
  Sex: Female

DRUGS (3)
  1. PREMPRO [Suspect]
     Dosage: UNK
  2. PREMARIN [Suspect]
     Dosage: UNK
  3. PROGESTERONE [Suspect]
     Dosage: UNK

REACTIONS (7)
  - DRUG INTOLERANCE [None]
  - ILL-DEFINED DISORDER [None]
  - HOT FLUSH [None]
  - HEADACHE [None]
  - FEELING ABNORMAL [None]
  - INCONTINENCE [None]
  - NERVOUSNESS [None]
